FAERS Safety Report 4691575-6 (Version None)
Quarter: 2005Q2

REPORT INFORMATION
  Report Type: 
  Country: None (occurrence: None)
  Receive Date: 20050616
  Receipt Date: 20050606
  Transmission Date: 20051028
  Serious: Yes (Other)
  Sender: FDA-Public Use
  Company Number: JP-SOLVAY-00305001938

PATIENT
  Age: 14 Year
  Sex: Female

DRUGS (8)
  1. LORAZEPAM [Concomitant]
     Indication: ILL-DEFINED DISORDER
     Dosage: DAILY DOSE: 1.5 MILLIGRAM(S)
     Route: 048
     Dates: start: 20050226, end: 20050401
  2. LORAZEPAM [Concomitant]
     Dosage: DAILY DOSE: 1 MILLIGRAM(S)
     Route: 048
     Dates: start: 20050402
  3. LUVOX [Suspect]
     Indication: OBSESSIVE-COMPULSIVE DISORDER
     Dosage: DAILY DOSE: 50 MILLIGRAM(S)
     Route: 048
     Dates: start: 20050226, end: 20050304
  4. LUVOX [Suspect]
     Dosage: DAILY DOSE: 100 MILLIGRAM(S)
     Route: 048
     Dates: start: 20050305, end: 20050311
  5. LUVOX [Suspect]
     Dosage: DAILY DOSE: 150 MILLIGRAM(S)
     Route: 048
     Dates: start: 20050312, end: 20050422
  6. LUVOX [Suspect]
     Dosage: DAILY DOSE: 125 MILLIGRAM(S)
     Route: 048
     Dates: start: 20050423, end: 20050513
  7. LUVOX [Suspect]
     Dosage: DAILY DOSE: 100 MILLIGRAM(S)
     Route: 048
     Dates: start: 20050514, end: 20050501
  8. LUVOX [Suspect]
     Dosage: DAILY DOSE: 25 MILLIGRAM(S)
     Route: 048
     Dates: start: 20050501

REACTIONS (2)
  - DYSTONIA [None]
  - OCULOGYRATION [None]
